FAERS Safety Report 5282996-1 (Version None)
Quarter: 2007Q2

REPORT INFORMATION
  Report Type: 
  Country: None (occurrence: None)
  Receive Date: 20070402
  Receipt Date: 20070323
  Transmission Date: 20071010
  Serious: Yes (Hospitalization)
  Sender: FDA-Public Use
  Company Number: FR-AMGEN-UK208722

PATIENT
  Sex: Male

DRUGS (3)
  1. PALIFERMIN - BLINDED [Suspect]
     Indication: MUCOSAL INFLAMMATION
     Route: 040
     Dates: start: 20070119
  2. CISPLATIN [Suspect]
     Route: 065
     Dates: start: 20070123
  3. TAHOR [Concomitant]
     Route: 065

REACTIONS (6)
  - ANOREXIA [None]
  - DEHYDRATION [None]
  - DIABETES MELLITUS INADEQUATE CONTROL [None]
  - FATIGUE [None]
  - NAUSEA [None]
  - RENAL FAILURE [None]
